FAERS Safety Report 7776494-0 (Version None)
Quarter: 2011Q3

REPORT INFORMATION
  Report Type: 
  Country: None (occurrence: None)
  Receive Date: 20110926
  Receipt Date: 20110916
  Transmission Date: 20111222
  Serious: Yes (Congenital Anomaly, Other)
  Sender: FDA-Public Use
  Company Number: CN-JNJFOC-20110908891

PATIENT

DRUGS (1)
  1. NIZORAL [Suspect]
     Indication: MATERNAL EXPOSURE DURING PREGNANCY
     Route: 050
     Dates: start: 20110501

REACTIONS (1)
  - FOETAL DISORDER [None]
